FAERS Safety Report 6844949-9 (Version None)
Quarter: 2010Q3

REPORT INFORMATION
  Report Type: 
  Country: None (occurrence: None)
  Receive Date: 20100715
  Receipt Date: 20100712
  Transmission Date: 20110219
  Serious: Yes (Other)
  Sender: FDA-Public Use
  Company Number: JP-ROXANE LABORATORIES, INC.-2010-RO-00823RO

PATIENT
  Age: 81 Year
  Sex: Female

DRUGS (4)
  1. CILOSTAZOL [Suspect]
     Indication: ANTIPLATELET THERAPY
     Dosage: 200 MG
  2. TICLOPIDINE HCL [Suspect]
     Indication: ANGINA PECTORIS
  3. HEPARIN [Suspect]
     Indication: CARDIAC FAILURE
     Route: 042
  4. ASPIRIN [Suspect]
     Indication: ANTIPLATELET THERAPY
     Dosage: 100 MG

REACTIONS (3)
  - ANAEMIA [None]
  - MUSCLE HAEMORRHAGE [None]
  - SHOCK [None]
